FAERS Safety Report 4971168-3 (Version None)
Quarter: 2006Q1

REPORT INFORMATION
  Report Type: 
  Country: None (occurrence: None)
  Receive Date: 20060222
  Receipt Date: 20050725
  Transmission Date: 20060701
  Serious: Yes (Other)
  Sender: FDA-Public Use
  Company Number: HQWYE522026JUL05

PATIENT
  Age: 67 Year
  Sex: Female
  Weight: 64.47 kg

DRUGS (9)
  1. PROTONIX [Suspect]
     Indication: NAUSEA
     Dosage: 40 MG 1X PER 1 DAY, ORAL
     Route: 048
     Dates: start: 20050704, end: 20050718
  2. COUMADIN [Suspect]
     Indication: PULMONARY EMBOLISM
     Dosage: 4 MG 1X PER 1 DAY ALTERNATING DOSE 4 MG EVERY OTHER DAY + 2MG EVERY OTHER DAY
     Dates: start: 20031201, end: 20050718
  3. COUMADIN [Suspect]
     Indication: PULMONARY EMBOLISM
     Dosage: 4 MG 1X PER 1 DAY ALTERNATING DOSE 4 MG EVERY OTHER DAY + 2MG EVERY OTHER DAY
     Dates: start: 20050721
  4. ATENOLOL [Concomitant]
  5. TRIAMTERENE AND HYDROCHLOROTHIAZID HARRIS (HYDROCHLOROTHIAZIDE/TIRAMTE [Concomitant]
  6. PREDNISONE TAB [Concomitant]
  7. FOLIC ACID [Concomitant]
  8. VITAMIN B6 [Concomitant]
  9. LIPITOR [Concomitant]

REACTIONS (3)
  - BLEEDING TIME PROLONGED [None]
  - DRUG INTERACTION [None]
  - INTERNATIONAL NORMALISED RATIO INCREASED [None]
